FAERS Safety Report 4328117-0 (Version None)
Quarter: 2004Q1

REPORT INFORMATION
  Report Type: 
  Country: None (occurrence: None)
  Receive Date: 20040325
  Receipt Date: 20040316
  Transmission Date: 20041129
  Serious: Yes (Other)
  Sender: FDA-Public Use
  Company Number: HQWYE970318MAR04

PATIENT
  Age: 29 Year
  Sex: Male
  Weight: 81.72 kg

DRUGS (1)
  1. PRIMATENE MIST [Suspect]
     Indication: ASTHMA
     Dosage: INHALATION
     Route: 055
     Dates: end: 19940101

REACTIONS (2)
  - CONDITION AGGRAVATED [None]
  - DYSPNOEA [None]
